FAERS Safety Report 19754000 (Version 2)
Quarter: 2023Q4

REPORT INFORMATION
  Report Type: Other
  Country: US (occurrence: None)
  Receive Date: 20210827
  Receipt Date: 20231207
  Transmission Date: 20240109
  Serious: Yes (Hospitalization, Other)
  Sender: FDA-Public Use
  Company Number: US-NIVAGEN-000004

PATIENT
  Age: 35 Year
  Sex: Male

DRUGS (3)
  1. SUCCINYLCHOLINE CHLORIDE [Suspect]
     Active Substance: SUCCINYLCHOLINE CHLORIDE
     Indication: Endotracheal intubation
     Route: 040
  2. ETOMIDATE [Concomitant]
     Active Substance: ETOMIDATE
     Indication: Endotracheal intubation
     Dosage: 20 MG IV
     Route: 042
  3. SUCCINYLCHOLINE CHLORIDE [Suspect]
     Active Substance: SUCCINYLCHOLINE CHLORIDE
     Indication: Endotracheal intubation
     Dosage: 160 MG IV
     Route: 040

REACTIONS (4)
  - Muscle rigidity [Unknown]
  - Muscle contractions involuntary [Unknown]
  - Apnoea [Unknown]
  - Underdose [Unknown]
